FAERS Safety Report 18430221 (Version 1)
Quarter: 2020Q4

REPORT INFORMATION
  Report Type: Spontaneous
  Country: JP (occurrence: JP)
  Receive Date: 20201027
  Receipt Date: 20201027
  Transmission Date: 20210114
  Serious: Yes (Hospitalization)
  Sender: FDA-Public Use
  Company Number: JP-TEVA-2020-JP-1842194

PATIENT
  Age: 72 Year
  Sex: Male

DRUGS (5)
  1. HEPARIN [Concomitant]
     Active Substance: HEPARIN SODIUM
     Indication: ANTICOAGULANT THERAPY
     Route: 042
  2. DEXAMETHASONE. [Concomitant]
     Active Substance: DEXAMETHASONE
     Indication: CNS VENTRICULITIS
     Dosage: 10 MILLIGRAM DAILY; FOR 4 DAYS
     Route: 065
  3. VANCOMYCIN [Suspect]
     Active Substance: VANCOMYCIN
     Indication: CNS VENTRICULITIS
     Dosage: 1.5 GRAM DAILY;
     Route: 065
  4. MEROPENEM. [Suspect]
     Active Substance: MEROPENEM
     Indication: CNS VENTRICULITIS
     Dosage: 6 GRAM DAILY;
     Route: 065
  5. AMPICILLIN [Suspect]
     Active Substance: AMPICILLIN
     Indication: CNS VENTRICULITIS
     Dosage: 12 GRAM DAILY;
     Route: 065

REACTIONS (3)
  - Neutropenia [Unknown]
  - Hepatic function abnormal [Unknown]
  - Renal impairment [Unknown]
